FAERS Safety Report 4390196-2 (Version None)
Quarter: 2004Q3

REPORT INFORMATION
  Report Type: 
  Country: None (occurrence: None)
  Receive Date: 20040706
  Receipt Date: 20040623
  Transmission Date: 20050211
  Serious: Yes (Other)
  Sender: FDA-Public Use
  Company Number: FI-GLAXOSMITHKLINE-B0337298A

PATIENT
  Age: 40 Year
  Sex: Female

DRUGS (3)
  1. IMIGRAN [Suspect]
     Indication: MIGRAINE
     Dates: start: 20040620
  2. UNKNOWN ANALGESIC [Concomitant]
     Indication: MIGRAINE
     Dates: start: 20040620
  3. METOZOC [Concomitant]
     Indication: MIGRAINE
     Dates: end: 20040617

REACTIONS (18)
  - APHASIA [None]
  - CONVULSION [None]
  - DYSPNOEA [None]
  - HEADACHE [None]
  - HOT FLUSH [None]
  - HYPERVENTILATION [None]
  - HYPOAESTHESIA [None]
  - HYPOAESTHESIA ORAL [None]
  - IMMOBILE [None]
  - MUSCLE TIGHTNESS [None]
  - NAUSEA [None]
  - ORAL DISCOMFORT [None]
  - PARAESTHESIA [None]
  - PARAESTHESIA ORAL [None]
  - PERIPHERAL COLDNESS [None]
  - RESPIRATORY RATE INCREASED [None]
  - SENSATION OF PRESSURE [None]
  - VISION BLURRED [None]
